FAERS Safety Report 8252201-2 (Version None)
Quarter: 2012Q2

REPORT INFORMATION
  Report Type: 
  Country: None (occurrence: None)
  Receive Date: 20120402
  Receipt Date: 20110504
  Transmission Date: 20120825
  Serious: No
  Sender: FDA-Public Use
  Company Number: US-ABBOTT-11P-163-0804487-00

PATIENT
  Sex: Female
  Weight: 90.909 kg

DRUGS (5)
  1. HYDROCHLOROTHIAZIDE [Concomitant]
     Indication: FLUID RETENTION
     Dosage: DAILY DOSE:  UNKNOWN
     Route: 065
  2. TESTOSTERONE [Suspect]
     Indication: ACCIDENTAL EXPOSURE
     Dosage: DAILY DOSE:  UNKNOWN
     Route: 062
  3. LEVOTHYROXINE [Concomitant]
     Indication: HYPOTHYROIDISM
     Dosage: DAILY DOSE:  UNKNOWN
     Route: 065
  4. PROGESTERONE [Concomitant]
     Indication: PRODUCT USED FOR UNKNOWN INDICATION
     Dosage: DAILY DOSE:  UNKNOWN
     Route: 065
  5. ESTRADIOL [Concomitant]
     Indication: PRODUCT USED FOR UNKNOWN INDICATION
     Dosage: DAILY DOSE:  UNKNOWN, FREQ: THREE TIMES A DAY
     Route: 065

REACTIONS (5)
  - BLOOD TESTOSTERONE INCREASED [None]
  - FATIGUE [None]
  - BLOOD THYROID STIMULATING HORMONE DECREASED [None]
  - ACCIDENTAL EXPOSURE [None]
  - HAIR GROWTH ABNORMAL [None]
